FAERS Safety Report 5263287-1 (Version None)
Quarter: 2007Q1

REPORT INFORMATION
  Report Type: 
  Country: None (occurrence: None)
  Receive Date: 20061219
  Receipt Date: 20061024
  Transmission Date: 20070707
  Serious: No
  Sender: FDA-Public Use
  Company Number: 2006US002374

PATIENT
  Age: 82 Year
  Sex: Female

DRUGS (9)
  1. VESICARE [Suspect]
     Indication: HYPERTONIC BLADDER
     Dosage: 5 MG, ORAL
     Route: 048
     Dates: start: 20060901, end: 20061001
  2. WELLBUTRIN [Concomitant]
  3. DITROPAN [Concomitant]
  4. ZOLOFT [Concomitant]
  5. LIPITOR [Concomitant]
  6. SYNTHROID [Concomitant]
  7. VICODIN [Concomitant]
  8. LISINOPRIL/HCTZ (LISINOPRIL) [Concomitant]
  9. FLURAZEPAM [Concomitant]

REACTIONS (3)
  - CONSTIPATION [None]
  - INSOMNIA [None]
  - MUSCLE SPASMS [None]
